FAERS Safety Report 5002610-X (Version None)
Quarter: 2006Q2

REPORT INFORMATION
  Report Type: 
  Country: None (occurrence: None)
  Receive Date: 20060510
  Receipt Date: 20060503
  Transmission Date: 20061013
  Serious: Yes (Other)
  Sender: FDA-Public Use
  Company Number: 2006059743

PATIENT
  Age: 19 Year
  Sex: Male
  Weight: 65 kg

DRUGS (1)
  1. DILANTIN KAPSEAL [Suspect]
     Indication: CONVULSION
     Dosage: (400 MG, 1 IN 1 D), ORAL
     Route: 048
     Dates: start: 19890124, end: 19890214

REACTIONS (4)
  - HEPATIC FUNCTION ABNORMAL [None]
  - LYMPHOPENIA [None]
  - NEUTROPENIA [None]
  - RASH MACULO-PAPULAR [None]
